FAERS Safety Report 10161256 (Version 2)
Quarter: 2014Q3

REPORT INFORMATION
  Report Type: Spontaneous
  Country: GB (occurrence: GB)
  Receive Date: 20140508
  Receipt Date: 20140822
  Transmission Date: 20150326
  Serious: Yes (Other)
  Sender: FDA-Public Use
  Company Number: GB-BAUSCH-BL-2014-002230

PATIENT
  Sex: Female

DRUGS (1)
  1. TROPICAMIDE. [Suspect]
     Active Substance: TROPICAMIDE
     Indication: PRODUCT USED FOR UNKNOWN INDICATION
     Dates: start: 20140304

REACTIONS (14)
  - Hypersensitivity [Unknown]
  - Heart rate irregular [Unknown]
  - Headache [Unknown]
  - Heart rate increased [Unknown]
  - Mydriasis [Unknown]
  - Urine output decreased [Unknown]
  - Nausea [Unknown]
  - Erythema [Unknown]
  - Dry skin [Unknown]
  - Dry mouth [Unknown]
  - Dizziness [Unknown]
  - Thirst [Unknown]
  - Skin burning sensation [Unknown]
  - Vision blurred [Unknown]

NARRATIVE: CASE EVENT DATE: 20140304
